FAERS Safety Report 8549312-0 (Version None)
Quarter: 2012Q3

REPORT INFORMATION
  Report Type: 
  Country: None (occurrence: None)
  Receive Date: 20120730
  Receipt Date: 20120716
  Transmission Date: 20120928
  Serious: Yes (Life-Threatening, Congenital Anomaly)
  Sender: FDA-Public Use
  Company Number: DE-MYLANLABS-2012S1014372

PATIENT
  Age: 0 Year
  Sex: Male
  Weight: 0.33 kg

DRUGS (4)
  1. VENLAFAXINE [Suspect]
     Dosage: 75 [MG/D ]
     Route: 064
     Dates: start: 20111125, end: 20120419
  2. LEVOTHYROXINE SODIUM [Concomitant]
     Dosage: 75 [?G/D ]
     Route: 064
  3. FEMIBION [Concomitant]
     Dosage: 0.4 [MG/D ]
     Route: 064
  4. OMEPRAZOLE [Concomitant]
     Dosage: 20 [MG/D ]
     Route: 064
     Dates: start: 20111125, end: 20120419

REACTIONS (2)
  - MATERNAL EXPOSURE DURING PREGNANCY [None]
  - POTTER'S SYNDROME [None]
